FAERS Safety Report 20625073 (Version 2)
Quarter: 2022Q2

REPORT INFORMATION
  Report Type: Spontaneous
  Country: US (occurrence: None)
  Receive Date: 20220323
  Receipt Date: 20220425
  Transmission Date: 20220721
  Serious: No
  Sender: FDA-Public Use
  Company Number: 2022A110154

PATIENT
  Age: 957 Month
  Sex: Female

DRUGS (1)
  1. BYDUREON BCISE [Suspect]
     Active Substance: EXENATIDE
     Indication: Type 2 diabetes mellitus
     Route: 058

REACTIONS (2)
  - Injection site discomfort [Recovering/Resolving]
  - Device leakage [Unknown]

NARRATIVE: CASE EVENT DATE: 20220201
